FAERS Safety Report 17511378 (Version 1)
Quarter: 2020Q1

REPORT INFORMATION
  Report Type: Spontaneous
  Country: US (occurrence: US)
  Receive Date: 20200306
  Receipt Date: 20200306
  Transmission Date: 20200409
  Serious: Yes (Other)
  Sender: FDA-Public Use
  Company Number: US-JNJFOC-20200240289

PATIENT
  Sex: Male

DRUGS (10)
  1. BABY ASPIRIN [Concomitant]
     Active Substance: ASPIRIN
     Indication: PRODUCT USED FOR UNKNOWN INDICATION
     Route: 065
  2. BERGAMOT OIL [Concomitant]
     Active Substance: BERGAMOT OIL
  3. FISH OIL                           /00492901/ [Concomitant]
     Active Substance: COD LIVER OIL
  4. RESVERATROL [Concomitant]
     Active Substance: DIETARY SUPPLEMENT\RESVERATROL
  5. XARELTO [Suspect]
     Active Substance: RIVAROXABAN
     Indication: PRODUCT USED FOR UNKNOWN INDICATION
     Route: 048
  6. NIACIN. [Concomitant]
     Active Substance: NIACIN
  7. BERBERINE [Concomitant]
     Active Substance: BERBERINE
  8. COENZYME Q10 [Concomitant]
     Active Substance: UBIDECARENONE
  9. VITAMIN D                          /00107901/ [Concomitant]
     Active Substance: ERGOCALCIFEROL
  10. POTASSIUM [Concomitant]
     Active Substance: POTASSIUM

REACTIONS (3)
  - Arterial occlusive disease [Recovering/Resolving]
  - Atrial fibrillation [Unknown]
  - Atrial flutter [Recovered/Resolved]

NARRATIVE: CASE EVENT DATE: 20191223
